FAERS Safety Report 8407472-6 (Version None)
Quarter: 2012Q2

REPORT INFORMATION
  Report Type: 
  Country: None (occurrence: None)
  Receive Date: 20120604
  Receipt Date: 20120529
  Transmission Date: 20120825
  Serious: No
  Sender: FDA-Public Use
  Company Number: US-PFIZER INC-2012129968

PATIENT
  Age: 50 Year
  Sex: Female

DRUGS (1)
  1. ZYVOX [Suspect]
     Indication: SKIN INFECTION
     Dosage: 600 MG, 2X/DAY
     Dates: start: 20120527

REACTIONS (2)
  - CONFUSIONAL STATE [None]
  - DIZZINESS [None]
